FAERS Safety Report 12009903 (Version 3)
Quarter: 2016Q4

REPORT INFORMATION
  Report Type: Report from Study
  Country: BR (occurrence: BR)
  Receive Date: 20160205
  Receipt Date: 20161107
  Transmission Date: 20170206
  Serious: Yes (Hospitalization, Other)
  Sender: FDA-Public Use
  Company Number: PHHY2014BR108234

PATIENT
  Sex: Female
  Weight: 50 kg

DRUGS (10)
  1. XOLAIR [Suspect]
     Active Substance: OMALIZUMAB
     Dosage: 2 DF, QMO, ON EACH ARM
     Route: 058
     Dates: start: 2010
  2. ALENIA [Concomitant]
     Active Substance: BUDESONIDE\FORMOTEROL FUMARATE
     Dosage: UNK, BID
     Route: 055
  3. XOLAIR [Suspect]
     Active Substance: OMALIZUMAB
     Dosage: 2 DF, QMO
     Route: 058
     Dates: end: 20150423
  4. FORASEQ [Suspect]
     Active Substance: BUDESONIDE\FORMOTEROL FUMARATE
     Indication: ASTHMA
     Dosage: 2 DF, QD (1 IN THE MORNING AND 1 IN THE AFTERNOON)
     Route: 065
  5. FORASEQ [Suspect]
     Active Substance: BUDESONIDE\FORMOTEROL FUMARATE
     Dosage: UNK, BID
     Route: 055
  6. ALENIA [Concomitant]
     Active Substance: BUDESONIDE\FORMOTEROL FUMARATE
     Indication: ASTHMA
     Dosage: 2 DF, QD (1 IN THE MORNING AND 1 IN THE AFTERNOON)
     Route: 048
     Dates: start: 2008
  7. ALENIA [Concomitant]
     Active Substance: BUDESONIDE\FORMOTEROL FUMARATE
     Dosage: 1 DF (12/400 MG), QD
     Route: 055
  8. XOLAIR [Suspect]
     Active Substance: OMALIZUMAB
     Indication: ALLERGIC BRONCHITIS
     Dosage: 4 DF, QMO
     Route: 058
  9. FORASEQ [Suspect]
     Active Substance: BUDESONIDE\FORMOTEROL FUMARATE
     Dosage: 3 DF, QD
     Route: 055
  10. XOLAIR [Suspect]
     Active Substance: OMALIZUMAB
     Indication: ASTHMA
     Dosage: 300 MG, QMO
     Route: 058
     Dates: start: 20090701

REACTIONS (17)
  - Bronchitis [Recovered/Resolved]
  - Dyspnoea exertional [Recovered/Resolved]
  - Bronchitis [Unknown]
  - Malaise [Unknown]
  - Bronchial disorder [Unknown]
  - Sensitivity to weather change [Unknown]
  - Fatigue [Not Recovered/Not Resolved]
  - Dyspnoea [Not Recovered/Not Resolved]
  - Breath sounds abnormal [Not Recovered/Not Resolved]
  - Hypersensitivity [Recovered/Resolved]
  - Wheezing [Not Recovered/Not Resolved]
  - Gait disturbance [Unknown]
  - Off label use [Unknown]
  - Drug ineffective [Unknown]
  - Asthma [Unknown]
  - Nasal dryness [Recovered/Resolved]
  - Gait disturbance [Recovered/Resolved]
